FAERS Safety Report 10006702 (Version 1)
Quarter: 2014Q1

REPORT INFORMATION
  Report Type: Report from Study
  Country: US (occurrence: US)
  Receive Date: 20140313
  Receipt Date: 20140313
  Transmission Date: 20141002
  Serious: Yes (Other)
  Sender: FDA-Public Use
  Company Number: US-BAYER-2014-036243

PATIENT
  Age: 37 Year
  Sex: Female

DRUGS (1)
  1. MIRENA [Suspect]
     Indication: CONTRACEPTION
     Dosage: UNK
     Route: 015
     Dates: start: 201303, end: 20140227

REACTIONS (6)
  - Uterine perforation [None]
  - Procedural pain [None]
  - Abdominal pain [None]
  - Dysmenorrhoea [None]
  - Abdominal pain lower [None]
  - Menstruation irregular [None]
